FAERS Safety Report 5026698-5 (Version None)
Quarter: 2006Q2

REPORT INFORMATION
  Report Type: 
  Country: None (occurrence: None)
  Receive Date: 20060608
  Receipt Date: 20060531
  Transmission Date: 20061013
  Serious: Yes (Hospitalization)
  Sender: FDA-Public Use
  Company Number: 2006070796

PATIENT
  Age: 67 Year
  Sex: Male

DRUGS (8)
  1. METHYLPREDNISOLONE ACETATE [Suspect]
     Indication: CHRONIC OBSTRUCTIVE PULMONARY DISEASE
     Dosage: 40M MG (40 MG), INTRAVENOUS
     Route: 042
     Dates: start: 20060507, end: 20060508
  2. GLYBURIDE [Concomitant]
  3. NITRENDIPINE (NITRENDIPINE) [Concomitant]
  4. INASPIR (SALMETEROL XINAFOATE) [Concomitant]
  5. SALBUTAMOL (SALBUTAMOL) [Concomitant]
  6. BERODUAL [Concomitant]
  7. ATROVENT [Concomitant]
  8. AMBROXOL (AMBROXOL) [Concomitant]

REACTIONS (6)
  - BACK PAIN [None]
  - CHILLS [None]
  - DYSPNOEA [None]
  - PHARMACEUTICAL PRODUCT COMPLAINT [None]
  - PYREXIA [None]
  - TREMOR [None]
